FAERS Safety Report 4579795-2 (Version None)
Quarter: 2005Q1

REPORT INFORMATION
  Report Type: 
  Country: None (occurrence: None)
  Receive Date: 20050210
  Receipt Date: 20050202
  Transmission Date: 20050727
  Serious: Yes (Other)
  Sender: FDA-Public Use
  Company Number: 2004119042

PATIENT
  Age: 64 Year
  Sex: Male

DRUGS (10)
  1. PHENYTOIN SODIUM [Suspect]
     Indication: EPILEPSY
     Dosage: 500 MG (500 MG, 1 IN 1 D)
     Dates: start: 20041203
  2. CARBAMAZEPINE [Concomitant]
  3. LAMOTRIGINE [Concomitant]
  4. PROMAZINE HCL [Concomitant]
  5. METOPROLOL TARTRATE [Concomitant]
  6. ATORVASTATIN (ATORVASTATIN) [Concomitant]
  7. PERINDOPRIL (PERINDOPRIL) [Concomitant]
  8. ACETYLSALICYLIC ACID SRT [Concomitant]
  9. INSULIN GLARGINE (INSULIN GLARGINE) [Concomitant]
  10. LOFEPRAMINE (LOFEPRAMINE) [Concomitant]

REACTIONS (4)
  - ANTICONVULSANT DRUG LEVEL DECREASED [None]
  - LOSS OF CONSCIOUSNESS [None]
  - PETIT MAL EPILEPSY [None]
  - TREATMENT NONCOMPLIANCE [None]
